FAERS Safety Report 8739948 (Version 2)
Quarter: 2012Q4

REPORT INFORMATION
  Report Type: Report from Study
  Country: US (occurrence: US)
  Receive Date: 20120823
  Receipt Date: 20120915
  Transmission Date: 20130627
  Serious: Yes (Hospitalization, Other)
  Sender: FDA-Public Use
  Company Number: US-ABBOTT-12P-163-0969457-00

PATIENT
  Age: 47 None
  Weight: 122.58 kg

DRUGS (38)
  1. HUMIRA [Suspect]
     Indication: PSORIATIC ARTHROPATHY
  2. HUMIRA [Suspect]
  3. HUMIRA [Suspect]
     Indication: PSORIATIC ARTHROPATHY
  4. HEPARIN [Concomitant]
     Indication: PRODUCT USED FOR UNKNOWN INDICATION
  5. ADVAIR [Concomitant]
     Indication: PRODUCT USED FOR UNKNOWN INDICATION
  6. ASTEPRO [Concomitant]
     Indication: PRODUCT USED FOR UNKNOWN INDICATION
  7. FLUTICASONE [Concomitant]
     Indication: PRODUCT USED FOR UNKNOWN INDICATION
  8. ZIRTEC [Concomitant]
     Indication: PRODUCT USED FOR UNKNOWN INDICATION
  9. ALLEGRA [Concomitant]
     Indication: PRODUCT USED FOR UNKNOWN INDICATION
  10. ZIRTEC [Concomitant]
     Indication: PRODUCT USED FOR UNKNOWN INDICATION
  11. ALLEGRA [Concomitant]
     Indication: PRODUCT USED FOR UNKNOWN INDICATION
  12. ALBUTEROL [Concomitant]
     Indication: PRODUCT USED FOR UNKNOWN INDICATION
  13. SPIRIVA [Concomitant]
     Indication: PRODUCT USED FOR UNKNOWN INDICATION
  14. LIDEX GEL [Concomitant]
     Indication: PRODUCT USED FOR UNKNOWN INDICATION
  15. TRIAMCINOLONE [Concomitant]
     Indication: PRODUCT USED FOR UNKNOWN INDICATION
  16. METHOTREXATE [Concomitant]
     Indication: PRODUCT USED FOR UNKNOWN INDICATION
  17. HYDROCODONE [Concomitant]
     Indication: PRODUCT USED FOR UNKNOWN INDICATION
  18. NAPROXEN [Concomitant]
     Indication: PRODUCT USED FOR UNKNOWN INDICATION
  19. METOPROLOL [Concomitant]
     Indication: BLOOD PRESSURE
  20. DIOVAN [Concomitant]
     Indication: PRODUCT USED FOR UNKNOWN INDICATION
  21. ASPIRIN [Concomitant]
     Indication: PRODUCT USED FOR UNKNOWN INDICATION
  22. FUROSEMIDE [Concomitant]
     Indication: PRODUCT USED FOR UNKNOWN INDICATION
  23. DILTIAZEM ER [Concomitant]
     Indication: BLOOD PRESSURE
  24. LEVOTHYROXINE [Concomitant]
     Indication: HYPOTHYROIDISM
  25. CHOLCYRS [Concomitant]
     Indication: PRODUCT USED FOR UNKNOWN INDICATION
  26. ALPRAZOLAM [Concomitant]
     Indication: ANXIETY
  27. ALPRAZOLAM [Concomitant]
     Indication: PANIC ATTACK
  28. SERTRALINE [Concomitant]
     Indication: PANIC ATTACK
  29. SERTRALINE [Concomitant]
     Indication: ANXIETY
  30. OXYGEN [Concomitant]
     Indication: SLEEP APNOEA SYNDROME
     Dosage: uses with bipap
  31. FISH OIL [Concomitant]
     Indication: PRODUCT USED FOR UNKNOWN INDICATION
  32. FLAXSEED [Concomitant]
     Indication: PRODUCT USED FOR UNKNOWN INDICATION
  33. MAGNESIUM W/ZINC [Concomitant]
     Indication: PRODUCT USED FOR UNKNOWN INDICATION
  34. MULTIVITAMIN [Concomitant]
     Indication: PRODUCT USED FOR UNKNOWN INDICATION
  35. CALCIUM +VIT D [Concomitant]
     Indication: PRODUCT USED FOR UNKNOWN INDICATION
  36. VITAMIN E [Concomitant]
     Indication: PRODUCT USED FOR UNKNOWN INDICATION
  37. VITAMIN C [Concomitant]
     Indication: PRODUCT USED FOR UNKNOWN INDICATION
  38. PREDNISON [Concomitant]
     Indication: GOUT

REACTIONS (28)
  - Anal fissure [Unknown]
  - Colonic fistula [Unknown]
  - Precancerous cells present [Unknown]
  - Bone graft [Unknown]
  - Rectal haemorrhage [Unknown]
  - Cervical spinal stenosis [Unknown]
  - Transient ischaemic attack [Recovered/Resolved]
  - Hypoxia [Unknown]
  - Chronic obstructive pulmonary disease [Not Recovered/Not Resolved]
  - Atelectasis [Unknown]
  - Haemorrhage [Recovered/Resolved]
  - Cataract [Recovered/Resolved]
  - Atrial fibrillation [Unknown]
  - Spinal laminectomy [Unknown]
  - Gastrointestinal pain [Unknown]
  - VIIth nerve paralysis [Unknown]
  - Tinnitus [Unknown]
  - Bundle branch block right [Unknown]
  - Sleep apnoea syndrome [Unknown]
  - Contusion [Recovered/Resolved]
  - Vomiting [Recovered/Resolved]
  - Oxygen saturation decreased [Unknown]
  - Unevaluable event [Recovered/Resolved]
  - Blood testosterone decreased [Unknown]
  - Atrial fibrillation [Unknown]
  - Gout [Unknown]
  - Platelet count decreased [Unknown]
  - White blood cell count increased [Unknown]
